FAERS Safety Report 22230110 (Version 1)
Quarter: 2023Q2

REPORT INFORMATION
  Report Type: Spontaneous
  Country: NL (occurrence: NL)
  Receive Date: 20230419
  Receipt Date: 20230419
  Transmission Date: 20230721
  Serious: Yes (Other)
  Sender: FDA-Public Use
  Company Number: None

PATIENT
  Sex: Female
  Weight: 95 kg

DRUGS (4)
  1. SELEGILINE [Suspect]
     Active Substance: SELEGILINE
     Indication: Parkinson^s disease
     Dosage: 1 DAY 1
     Route: 065
     Dates: start: 20150628
  2. PRAMIPEXOLE [Concomitant]
     Active Substance: PRAMIPEXOLE
     Indication: Product used for unknown indication
     Dosage: MODIFIED-RELEASE TABLET, 2.25 MG, PRAMIPEXOL MGA/ SIFROL TABLET MVA 2.25MG (1.57MG BASE)
  3. SINEMET [Concomitant]
     Active Substance: CARBIDOPA\LEVODOPA
     Indication: Product used for unknown indication
     Dosage: TABLET, 100/25 MG, LEVODOPA/CARBIDOPA TABLET 100/25MG / SINEMET 125 TABLET 100/25MG
  4. BENSERAZIDE HYDROCHLORIDE\LEVODOPA [Concomitant]
     Active Substance: BENSERAZIDE HYDROCHLORIDE\LEVODOPA
     Indication: Product used for unknown indication
     Dosage: MODIFIED-RELEASE CAPSULE, 100/25 MG, LEVODOPA/BENSERAZIDE MGA 100/25MG/MADOPAR HBS CAPSULE MGA 125MG

REACTIONS (6)
  - Parkinson^s disease [Recovering/Resolving]
  - Fatigue [Recovering/Resolving]
  - Vertigo [Recovered/Resolved]
  - Tremor [Recovering/Resolving]
  - Nausea [Recovered/Resolved]
  - Product substitution issue [Unknown]
